FAERS Safety Report 22824704 (Version 4)
Quarter: 2023Q4

REPORT INFORMATION
  Report Type: Spontaneous
  Country: US (occurrence: US)
  Receive Date: 20230815
  Receipt Date: 20231113
  Transmission Date: 20240110
  Serious: Yes (Other)
  Sender: FDA-Public Use
  Company Number: US-Stemline Therapeutics, Inc.-2023ST002440

PATIENT
  Age: 58 Year
  Sex: Female

DRUGS (1)
  1. ORSERDU [Suspect]
     Active Substance: ELACESTRANT
     Indication: Product used for unknown indication
     Dosage: 345MG ONCE DAILY
     Route: 048

REACTIONS (15)
  - Metastases to bone [Unknown]
  - Tumour marker increased [Unknown]
  - Increased appetite [Recovering/Resolving]
  - Brain scan abnormal [Unknown]
  - Dry eye [Unknown]
  - Feeling abnormal [Unknown]
  - Product dose omission issue [Unknown]
  - Gastric infection [Unknown]
  - Paraesthesia [Unknown]
  - Arthritis [Unknown]
  - Bone pain [Unknown]
  - Blood cholesterol increased [Unknown]
  - Vomiting [Unknown]
  - Fatigue [Unknown]
  - Nausea [Unknown]
